FAERS Safety Report 15803474 (Version 3)
Quarter: 2019Q1

REPORT INFORMATION
  Report Type: Spontaneous
  Country: US (occurrence: US)
  Receive Date: 20190109
  Receipt Date: 20190311
  Transmission Date: 20190417
  Serious: Yes (Other)
  Sender: FDA-Public Use
  Company Number: US-BAYER-2019-003864

PATIENT
  Age: 38 Year
  Sex: Female

DRUGS (4)
  1. MIRENA [Suspect]
     Active Substance: LEVONORGESTREL
  2. MIRENA [Suspect]
     Active Substance: LEVONORGESTREL
     Indication: MENORRHAGIA
  3. MIRENA [Suspect]
     Active Substance: LEVONORGESTREL
     Indication: CONTRACEPTION
     Dosage: 20 MCG/24HR, CONT
     Route: 015
     Dates: start: 20181119, end: 20190102
  4. POVIDONE-IODINE. [Concomitant]
     Active Substance: POVIDONE-IODINE

REACTIONS (4)
  - Cervicitis human papilloma virus [None]
  - Cervical dysplasia [None]
  - Unintentional medical device removal [None]
  - Device issue [None]

NARRATIVE: CASE EVENT DATE: 20190102
